FAERS Safety Report 25127092 (Version 3)
Quarter: 2025Q4

REPORT INFORMATION
  Report Type: Spontaneous
  Country: US (occurrence: None)
  Receive Date: 20250327
  Receipt Date: 20251031
  Transmission Date: 20260118
  Serious: No
  Sender: UCB
  Company Number: US-UCBSA-2025006956

PATIENT
  Age: 48 Year

DRUGS (2)
  1. BIMZELX [Suspect]
     Active Substance: BIMEKIZUMAB-BKZX
     Indication: Psoriasis
     Dosage: 320 MILLIGRAM, EV 4 WEEKS
  2. BIMZELX [Suspect]
     Active Substance: BIMEKIZUMAB-BKZX
     Dosage: 320 MILLIGRAM, EV 8 WEEKS

REACTIONS (9)
  - Injection site reaction [Recovered/Resolved]
  - Arthralgia [Unknown]
  - Psoriasis [Unknown]
  - Nasopharyngitis [Unknown]
  - Skin reaction [Recovered/Resolved]
  - Sinusitis [Unknown]
  - Headache [Unknown]
  - Oral pain [Unknown]
  - Depression [Unknown]
